FAERS Safety Report 10504973 (Version 2)
Quarter: 2014Q3

REPORT INFORMATION
  Report Type: Spontaneous
  Country: US (occurrence: None)
  Receive Date: 20140915
  Receipt Date: 20140915
  Transmission Date: 20150326
  Serious: Yes (Death)
  Sender: FDA-Public Use
  Company Number: 2012SGN00577

PATIENT
  Age: 63 Year
  Sex: Male

DRUGS (1)
  1. ADCETRIS [Suspect]
     Active Substance: BRENTUXIMAB VEDOTIN
     Indication: HODGKIN^S DISEASE
     Dosage: 150 MG, Q21D, INTRAVENOUS
     Route: 042
     Dates: start: 20111216, end: 20120125

REACTIONS (3)
  - Hodgkin^s disease [None]
  - Disease progression [None]
  - Malignant neoplasm progression [None]
